FAERS Safety Report 7775046-6 (Version None)
Quarter: 2011Q3

REPORT INFORMATION
  Report Type: 
  Country: None (occurrence: None)
  Receive Date: 20110923
  Receipt Date: 20110915
  Transmission Date: 20111222
  Serious: Yes (Other)
  Sender: FDA-Public Use
  Company Number: US-ROCHE-804080

PATIENT
  Age: 61 Year
  Sex: Female

DRUGS (2)
  1. TAXOL [Suspect]
     Route: 065
     Dates: start: 20010101, end: 20020101
  2. HERCEPTIN [Suspect]
     Route: 065
     Dates: start: 20010101, end: 20020101

REACTIONS (1)
  - ACUTE LYMPHOCYTIC LEUKAEMIA [None]
